FAERS Safety Report 4812812-0 (Version None)
Quarter: 2005Q4

REPORT INFORMATION
  Report Type: 
  Country: None (occurrence: None)
  Receive Date: 20051028
  Receipt Date: 20041122
  Transmission Date: 20060501
  Serious: No
  Sender: FDA-Public Use
  Company Number: US-GLAXOSMITHKLINE-A0534847A

PATIENT
  Age: 43 Year
  Sex: Female

DRUGS (10)
  1. ADVAIR DISKUS 100/50 [Suspect]
     Indication: ASTHMA
     Dosage: 1PUFF TWICE PER DAY
     Route: 055
     Dates: start: 20041112
  2. BROMFED-PD [Concomitant]
  3. ASACOL [Concomitant]
  4. PRILOSEC [Concomitant]
  5. PURINETHOL [Concomitant]
  6. UNKNOWN MEDICATION [Concomitant]
  7. SINGULAIR [Concomitant]
  8. PREMPRO [Concomitant]
  9. DIAZIDE [Concomitant]
  10. ACTONEL [Concomitant]

REACTIONS (1)
  - ECZEMA [None]
